FAERS Safety Report 10349496 (Version 1)
Quarter: 2014Q3

REPORT INFORMATION
  Report Type: Spontaneous
  Country: US (occurrence: US)
  Receive Date: 20140730
  Receipt Date: 20140730
  Transmission Date: 20150326
  Serious: No
  Sender: FDA-Public Use
  Company Number: US-SHIRE-US201404398

PATIENT
  Age: 6 Year
  Sex: Male

DRUGS (2)
  1. VYVANSE [Suspect]
     Active Substance: LISDEXAMFETAMINE DIMESYLATE
     Dosage: UNK ( HALF OF 20 MG CONTENT) 1X/DAY:QD
     Route: 048
  2. VYVANSE [Suspect]
     Active Substance: LISDEXAMFETAMINE DIMESYLATE
     Indication: ATTENTION DEFICIT/HYPERACTIVITY DISORDER
     Dosage: 20 MG (MIXED 20 MG IN WATER), 1X/DAY:QD
     Route: 048

REACTIONS (4)
  - Mood swings [Unknown]
  - Heart rate increased [Unknown]
  - Crying [Unknown]
  - Incorrect dose administered [Recovered/Resolved]
